FAERS Safety Report 18036205 (Version 2)
Quarter: 2020Q3

REPORT INFORMATION
  Report Type: Spontaneous
  Country: DE (occurrence: DE)
  Receive Date: 20200717
  Receipt Date: 20200723
  Transmission Date: 20201103
  Serious: Yes (Hospitalization, Other)
  Sender: FDA-Public Use
  Company Number: DE-009507513-2007DEU004253

PATIENT
  Age: 81 Year
  Sex: Female

DRUGS (9)
  1. VELMETIA [Suspect]
     Active Substance: METFORMIN\SITAGLIPTIN
     Indication: DIABETES MELLITUS
     Dosage: 50MG/1000MG
     Route: 048
     Dates: start: 201901
  2. ELIQUIS [Suspect]
     Active Substance: APIXABAN
     Dosage: UNK
     Dates: end: 201910
  3. PREGABALIN. [Suspect]
     Active Substance: PREGABALIN
     Dosage: UNK
     Dates: end: 201910
  4. ALLOPURINOL. [Suspect]
     Active Substance: ALLOPURINOL
     Dosage: UNK
     Dates: end: 201910
  5. L?THYROXIN [Suspect]
     Active Substance: LEVOTHYROXINE SODIUM
     Dosage: UNK
     Dates: end: 201910
  6. JANUMET [Suspect]
     Active Substance: METFORMIN HYDROCHLORIDE\SITAGLIPTIN PHOSPHATE
     Indication: DIABETES MELLITUS
     Dosage: 50MG/1000MG
     Route: 048
     Dates: start: 201901
  7. SIMVASTATIN. [Suspect]
     Active Substance: SIMVASTATIN
     Dosage: UNK
     Dates: end: 201910
  8. METOPROLOL. [Suspect]
     Active Substance: METOPROLOL
     Dosage: UNK
     Dates: end: 201910
  9. TORSEMIDE. [Suspect]
     Active Substance: TORSEMIDE
     Dosage: UNK
     Dates: end: 201910

REACTIONS (6)
  - Nervous system disorder [Unknown]
  - Skin mass [Not Recovered/Not Resolved]
  - Skin lesion [Recovered/Resolved]
  - Stress [Unknown]
  - Carotid artery stenosis [Unknown]
  - Pruritus [Not Recovered/Not Resolved]

NARRATIVE: CASE EVENT DATE: 201910
